FAERS Safety Report 26098301 (Version 1)
Quarter: 2025Q4

REPORT INFORMATION
  Report Type: Spontaneous
  Country: GB (occurrence: GB)
  Receive Date: 20251127
  Receipt Date: 20251127
  Transmission Date: 20260117
  Serious: Yes (Other)
  Sender: Kenvue
  Company Number: None

PATIENT

DRUGS (285)
  1. ACETAMINOPHEN AND CODEINE [Suspect]
     Active Substance: ACETAMINOPHEN\CODEINE PHOSPHATE
     Indication: Product used for unknown indication
     Dosage: 6 DOSAGE FORM, ONCE A DAY ((2 DOSAGE FORM, TID, 6 DOSAGE FORM, TID 2DOSAGE FORM, TID 6 DOSAGE FORM, QD))
     Route: 065
  2. ACETAMINOPHEN\CODEINE PHOSPHATE [Suspect]
     Active Substance: ACETAMINOPHEN\CODEINE PHOSPHATE
     Indication: Product used for unknown indication
     Dosage: 2 DOSAGE FORM, ONCE A DAY
  3. ACETAMINOPHEN\CODEINE PHOSPHATE [Suspect]
     Active Substance: ACETAMINOPHEN\CODEINE PHOSPHATE
     Dosage: 6 DOSAGE FORM, ONCE A DAY
  4. ACETAMINOPHEN\CODEINE PHOSPHATE [Suspect]
     Active Substance: ACETAMINOPHEN\CODEINE PHOSPHATE
     Dosage: 6 DOSAGE FORM, ONCE A DAY (2 DOSAGE FORM, TID, (30/500MG 2 TABLETS TDS); TIME INTERVAL :0.33333333 DAYS)
  5. ACETAMINOPHEN\CODEINE PHOSPHATE [Suspect]
     Active Substance: ACETAMINOPHEN\CODEINE PHOSPHATE
     Dosage: 6 DOSAGE FORM, ONCE A DAY
  6. ACETAMINOPHEN\CODEINE PHOSPHATE [Suspect]
     Active Substance: ACETAMINOPHEN\CODEINE PHOSPHATE
     Dosage: 6 DOSAGE FORM, ONCE A DAY
  7. ACETAMINOPHEN\CODEINE PHOSPHATE [Suspect]
     Active Substance: ACETAMINOPHEN\CODEINE PHOSPHATE
     Dosage: 6 DOSAGE FORM, ONCE A DAY
  8. ACETAMINOPHEN\CODEINE PHOSPHATE [Suspect]
     Active Substance: ACETAMINOPHEN\CODEINE PHOSPHATE
     Dosage: 6 DOSAGE FORM, ONCE A DAY
  9. ACETAMINOPHEN\CODEINE PHOSPHATE [Suspect]
     Active Substance: ACETAMINOPHEN\CODEINE PHOSPHATE
     Dosage: 6 DOSAGE FORM, ONCE A DAY
  10. ACETAMINOPHEN\CODEINE PHOSPHATE [Suspect]
     Active Substance: ACETAMINOPHEN\CODEINE PHOSPHATE
     Dosage: 6 DOSAGE FORM, ONCE A DAY
  11. ACETAMINOPHEN\CODEINE PHOSPHATE [Suspect]
     Active Substance: ACETAMINOPHEN\CODEINE PHOSPHATE
     Dosage: 6 DOSAGE FORM, ONCE A DAY
  12. ACETAMINOPHEN\CODEINE PHOSPHATE [Suspect]
     Active Substance: ACETAMINOPHEN\CODEINE PHOSPHATE
     Dosage: 2 DOSAGE FORM, ONCE A DAY
  13. ACETAMINOPHEN\CODEINE PHOSPHATE [Suspect]
     Active Substance: ACETAMINOPHEN\CODEINE PHOSPHATE
     Dosage: 6 DOSAGE FORM, ONCE A DAY
     Route: 065
  14. ACETAMINOPHEN\CODEINE PHOSPHATE [Suspect]
     Active Substance: ACETAMINOPHEN\CODEINE PHOSPHATE
     Dosage: 6 DOSAGE FORM, ONCE A DAY
  15. COSENTYX [Suspect]
     Active Substance: SECUKINUMAB
     Indication: Product used for unknown indication
     Dosage: 300 MILLIGRAM, ONCE IN A MONTH [300 MG, QMO (MONTHLY) (OROMUCOSAL SUSPENSION)]
  16. COSENTYX [Suspect]
     Active Substance: SECUKINUMAB
     Dosage: 300 MILLIGRAM, ONCE IN A MONTH
     Route: 065
  17. COSENTYX [Suspect]
     Active Substance: SECUKINUMAB
     Dosage: 300 MILLIGRAM, ONCE IN A MONTH
  18. COSENTYX [Suspect]
     Active Substance: SECUKINUMAB
     Dosage: 300 MILLIGRAM, ONCE IN A MONTH
  19. COSENTYX [Suspect]
     Active Substance: SECUKINUMAB
     Dosage: 300 MILLIGRAM, ONCE IN A MONTH
  20. COSENTYX [Suspect]
     Active Substance: SECUKINUMAB
     Dosage: 300 MILLIGRAM, ONCE IN A MONTH
  21. COSENTYX [Suspect]
     Active Substance: SECUKINUMAB
     Dosage: 300 MILLIGRAM, ONCE IN A MONTH
  22. COSENTYX [Suspect]
     Active Substance: SECUKINUMAB
     Dosage: 300 MILLIGRAM, ONCE IN A MONTH
  23. COSENTYX [Suspect]
     Active Substance: SECUKINUMAB
     Dosage: 300 MILLIGRAM, ONCE IN A MONTH
  24. COSENTYX [Suspect]
     Active Substance: SECUKINUMAB
     Dosage: 300 MILLIGRAM, ONCE IN A MONTH
  25. COSENTYX [Suspect]
     Active Substance: SECUKINUMAB
     Dosage: 300 MILLIGRAM, ONCE IN A MONTH
  26. COSENTYX [Suspect]
     Active Substance: SECUKINUMAB
     Dosage: 300 MILLIGRAM, ONCE IN A MONTH
  27. COSENTYX [Suspect]
     Active Substance: SECUKINUMAB
     Dosage: 300 MILLIGRAM, ONCE IN A MONTH
  28. COSENTYX [Suspect]
     Active Substance: SECUKINUMAB
     Dosage: 300 MILLIGRAM, ONCE IN A MONTH
  29. COSENTYX [Suspect]
     Active Substance: SECUKINUMAB
     Dosage: 300 MILLIGRAM, ONCE IN A MONTH
  30. COSENTYX [Suspect]
     Active Substance: SECUKINUMAB
     Dosage: 300 MILLIGRAM, ONCE IN A MONTH
  31. COSENTYX [Suspect]
     Active Substance: SECUKINUMAB
     Dosage: 300 MILLIGRAM, ONCE IN A MONTH
  32. COSENTYX [Suspect]
     Active Substance: SECUKINUMAB
     Dosage: 300 MILLIGRAM, ONCE IN A MONTH
  33. COSENTYX [Suspect]
     Active Substance: SECUKINUMAB
     Dosage: 300 MILLIGRAM, ONCE IN A MONTH
  34. COSENTYX [Suspect]
     Active Substance: SECUKINUMAB
     Dosage: 300 MILLIGRAM, ONCE IN A MONTH
  35. COSENTYX [Suspect]
     Active Substance: SECUKINUMAB
     Dosage: 300 MILLIGRAM, ONCE IN A MONTH
  36. CYCLOSPORINE [Suspect]
     Active Substance: CYCLOSPORINE
     Indication: Psoriasis
     Route: 065
  37. CYCLOSPORINE [Suspect]
     Active Substance: CYCLOSPORINE
     Dosage: UNK
     Route: 065
  38. CYCLOSPORINE [Suspect]
     Active Substance: CYCLOSPORINE
     Dosage: UNK
     Route: 065
  39. CYCLOSPORINE [Suspect]
     Active Substance: CYCLOSPORINE
     Dosage: UNK
     Route: 065
  40. CYCLOSPORINE [Suspect]
     Active Substance: CYCLOSPORINE
     Dosage: UNK
     Route: 065
  41. CYCLOSPORINE [Suspect]
     Active Substance: CYCLOSPORINE
     Dosage: 300 MILLIGRAM, ONCE IN A MONTH
     Route: 065
  42. CYCLOSPORINE [Suspect]
     Active Substance: CYCLOSPORINE
     Dosage: UNK
     Route: 065
  43. CYCLOSPORINE [Suspect]
     Active Substance: CYCLOSPORINE
     Dosage: 300 MILLIGRAM, ONCE IN A MONTH
     Route: 065
  44. CYCLOSPORINE [Suspect]
     Active Substance: CYCLOSPORINE
     Dosage: UNK
     Route: 065
  45. CYCLOSPORINE [Suspect]
     Active Substance: CYCLOSPORINE
     Dosage: 300 MILLIGRAM, ONCE IN A MONTH
     Route: 065
  46. CYCLOSPORINE [Suspect]
     Active Substance: CYCLOSPORINE
     Dosage: UNK
     Route: 065
  47. CYCLOSPORINE [Suspect]
     Active Substance: CYCLOSPORINE
     Dosage: UNK
     Route: 065
  48. CYCLOSPORINE [Suspect]
     Active Substance: CYCLOSPORINE
     Dosage: UNK
     Route: 065
  49. CYCLOSPORINE [Suspect]
     Active Substance: CYCLOSPORINE
     Dosage: 300 MILLIGRAM, ONCE IN A MONTH
  50. CYCLOSPORINE [Suspect]
     Active Substance: CYCLOSPORINE
     Dosage: 300 MILLIGRAM, ONCE IN A MONTH
  51. CYCLOSPORINE [Suspect]
     Active Substance: CYCLOSPORINE
     Dosage: 300 MILLIGRAM, ONCE IN A MONTH
     Route: 065
  52. CYCLOSPORINE [Suspect]
     Active Substance: CYCLOSPORINE
     Dosage: 300 MILLIGRAM, ONCE IN A MONTH
     Route: 065
  53. CYCLOSPORINE [Suspect]
     Active Substance: CYCLOSPORINE
     Dosage: 300 MILLIGRAM, ONCE IN A MONTH
     Route: 065
  54. CYCLOSPORINE [Suspect]
     Active Substance: CYCLOSPORINE
     Dosage: 300 MILLIGRAM
     Route: 065
  55. CYCLOSPORINE [Suspect]
     Active Substance: CYCLOSPORINE
     Dosage: 300 MILLIGRAM
     Route: 065
  56. CYCLOSPORINE [Suspect]
     Active Substance: CYCLOSPORINE
     Dosage: 300 MILLIGRAM
     Route: 065
  57. SECUKINUMAB [Suspect]
     Active Substance: SECUKINUMAB
     Indication: Product used for unknown indication
     Dosage: 300 MILLIGRAM, ONCE IN A MONTH (300 MG MONTHLY)(300 MG, QMO) OROMUCOSALSUSPENSION)
  58. SECUKINUMAB [Suspect]
     Active Substance: SECUKINUMAB
     Dosage: 300 MILLIGRAM, ONCE IN A MONTH (300 MG MONTHLY)(300 MG, QMO) OROMUCOSALSUSPENSION)
     Route: 065
  59. SECUKINUMAB [Suspect]
     Active Substance: SECUKINUMAB
     Dosage: 300 MILLIGRAM, ONCE IN A MONTH (300 MG MONTHLY)(300 MG, QMO) OROMUCOSALSUSPENSION)
     Route: 065
  60. SECUKINUMAB [Suspect]
     Active Substance: SECUKINUMAB
     Dosage: 300 MILLIGRAM, ONCE IN A MONTH (300 MG MONTHLY)(300 MG, QMO) OROMUCOSALSUSPENSION)
  61. SECUKINUMAB [Suspect]
     Active Substance: SECUKINUMAB
     Dosage: 300 MILLIGRAM, ONCE IN A MONTH (300 MG MONTHLY)(300 MG, QMO) OROMUCOSALSUSPENSION)
     Route: 065
  62. SECUKINUMAB [Suspect]
     Active Substance: SECUKINUMAB
     Dosage: 300 MILLIGRAM, ONCE IN A MONTH (300 MG MONTHLY)(300 MG, QMO) OROMUCOSALSUSPENSION)
     Route: 065
  63. SECUKINUMAB [Suspect]
     Active Substance: SECUKINUMAB
     Dosage: 300 MILLIGRAM, ONCE IN A MONTH (300 MG MONTHLY)(300 MG, QMO) OROMUCOSALSUSPENSION)
     Route: 065
  64. SECUKINUMAB [Suspect]
     Active Substance: SECUKINUMAB
     Dosage: 300 MILLIGRAM, ONCE IN A MONTH (300 MG MONTHLY)(300 MG, QMO) OROMUCOSALSUSPENSION)
  65. SECUKINUMAB [Suspect]
     Active Substance: SECUKINUMAB
     Dosage: 300 MILLIGRAM, ONCE IN A MONTH (300 MG MONTHLY)(300 MG, QMO) OROMUCOSALSUSPENSION)
  66. SECUKINUMAB [Suspect]
     Active Substance: SECUKINUMAB
     Dosage: 300 MILLIGRAM, ONCE IN A MONTH (300 MG MONTHLY)(300 MG, QMO) OROMUCOSALSUSPENSION)
  67. SECUKINUMAB [Suspect]
     Active Substance: SECUKINUMAB
     Dosage: 300 MILLIGRAM, ONCE IN A MONTH (300 MG MONTHLY)(300 MG, QMO) OROMUCOSALSUSPENSION)
  68. SECUKINUMAB [Suspect]
     Active Substance: SECUKINUMAB
     Dosage: 300 MILLIGRAM, ONCE IN A MONTH (300 MG MONTHLY)(300 MG, QMO) OROMUCOSALSUSPENSION)
  69. SECUKINUMAB [Suspect]
     Active Substance: SECUKINUMAB
     Dosage: 300 MILLIGRAM, ONCE IN A MONTH (300 MG MONTHLY)(300 MG, QMO) OROMUCOSALSUSPENSION)
  70. SECUKINUMAB [Suspect]
     Active Substance: SECUKINUMAB
     Dosage: 300 MILLIGRAM, ONCE IN A MONTH (300 MG MONTHLY)(300 MG, QMO) OROMUCOSALSUSPENSION)
  71. SECUKINUMAB [Suspect]
     Active Substance: SECUKINUMAB
     Dosage: 300 MILLIGRAM, ONCE IN A MONTH (300 MG MONTHLY)(300 MG, QMO) OROMUCOSALSUSPENSION)
  72. SECUKINUMAB [Suspect]
     Active Substance: SECUKINUMAB
     Dosage: 300 MILLIGRAM, ONCE IN A MONTH (300 MG MONTHLY)(300 MG, QMO) OROMUCOSALSUSPENSION)
  73. SECUKINUMAB [Suspect]
     Active Substance: SECUKINUMAB
     Dosage: 300 MILLIGRAM, ONCE IN A MONTH (300 MG MONTHLY)(300 MG, QMO) OROMUCOSALSUSPENSION)
  74. SECUKINUMAB [Suspect]
     Active Substance: SECUKINUMAB
     Dosage: 300 MILLIGRAM, ONCE IN A MONTH (300 MG MONTHLY)(300 MG, QMO) OROMUCOSALSUSPENSION)
  75. SECUKINUMAB [Suspect]
     Active Substance: SECUKINUMAB
     Dosage: 300 MILLIGRAM, ONCE IN A MONTH (300 MG MONTHLY)(300 MG, QMO) OROMUCOSALSUSPENSION)
  76. SECUKINUMAB [Suspect]
     Active Substance: SECUKINUMAB
     Dosage: 300 MILLIGRAM, ONCE IN A MONTH (300 MG MONTHLY)(300 MG, QMO) OROMUCOSALSUSPENSION)
  77. SECUKINUMAB [Suspect]
     Active Substance: SECUKINUMAB
     Dosage: 300 MILLIGRAM, ONCE IN A MONTH (300 MG MONTHLY)(300 MG, QMO) OROMUCOSALSUSPENSION)
  78. SECUKINUMAB [Suspect]
     Active Substance: SECUKINUMAB
     Dosage: 300 MILLIGRAM, ONCE IN A MONTH (300 MG MONTHLY)(300 MG, QMO) OROMUCOSALSUSPENSION)
  79. SECUKINUMAB [Suspect]
     Active Substance: SECUKINUMAB
     Dosage: 300 MILLIGRAM, ONCE IN A MONTH (300 MG MONTHLY)(300 MG, QMO) OROMUCOSALSUSPENSION)
  80. SECUKINUMAB [Suspect]
     Active Substance: SECUKINUMAB
     Dosage: 300 MILLIGRAM, ONCE IN A MONTH (300 MG MONTHLY)(300 MG, QMO) OROMUCOSALSUSPENSION)
  81. SECUKINUMAB [Suspect]
     Active Substance: SECUKINUMAB
     Dosage: 300 MILLIGRAM, ONCE IN A MONTH (300 MG MONTHLY)(300 MG, QMO) OROMUCOSALSUSPENSION)
  82. METHOTREXATE [Suspect]
     Active Substance: METHOTREXATE
     Indication: Psoriasis
     Route: 065
  83. METHOTREXATE [Suspect]
     Active Substance: METHOTREXATE
  84. METHOTREXATE [Suspect]
     Active Substance: METHOTREXATE
     Dosage: UNK
     Route: 065
  85. METHOTREXATE [Suspect]
     Active Substance: METHOTREXATE
     Dosage: 6 DOSAGE FORM (2 DOSAGE FORM, TID (30/500MG 2 TABLETS TDS), TIME INTERVAL))
     Route: 065
  86. METHOTREXATE [Suspect]
     Active Substance: METHOTREXATE
     Dosage: UNK
     Route: 065
  87. METHOTREXATE [Suspect]
     Active Substance: METHOTREXATE
     Dosage: UNK
     Route: 065
  88. METHOTREXATE [Suspect]
     Active Substance: METHOTREXATE
     Dosage: UNK
     Route: 065
  89. METHOTREXATE [Suspect]
     Active Substance: METHOTREXATE
     Dosage: UNK
     Route: 065
  90. METHOTREXATE [Suspect]
     Active Substance: METHOTREXATE
     Dosage: UNK
     Route: 065
  91. METHOTREXATE [Suspect]
     Active Substance: METHOTREXATE
     Dosage: UNK
     Route: 065
  92. METHOTREXATE [Suspect]
     Active Substance: METHOTREXATE
     Dosage: UNK
     Route: 065
  93. METHOTREXATE [Suspect]
     Active Substance: METHOTREXATE
     Dosage: UNK
     Route: 065
  94. METHOTREXATE [Suspect]
     Active Substance: METHOTREXATE
     Dosage: UNK
     Route: 065
  95. METHOTREXATE [Suspect]
     Active Substance: METHOTREXATE
     Dosage: UNK
     Route: 065
  96. METHOTREXATE [Suspect]
     Active Substance: METHOTREXATE
     Dosage: UNK
     Route: 065
  97. METHOTREXATE [Suspect]
     Active Substance: METHOTREXATE
     Dosage: METHOTREXATE SODIUM
  98. METHOTREXATE [Suspect]
     Active Substance: METHOTREXATE
     Indication: Psoriasis
     Dosage: UNK
     Route: 065
  99. METHOTREXATE [Suspect]
     Active Substance: METHOTREXATE
     Dosage: UNK
     Route: 065
  100. METHOTREXATE [Suspect]
     Active Substance: METHOTREXATE
     Dosage: UNK
     Route: 065
  101. METHOTREXATE [Suspect]
     Active Substance: METHOTREXATE
     Dosage: UNK
     Route: 065
  102. METHOTREXATE [Suspect]
     Active Substance: METHOTREXATE
     Dosage: UNK
     Route: 065
  103. METHOTREXATE [Suspect]
     Active Substance: METHOTREXATE
     Dosage: UNK
     Route: 065
  104. METHOTREXATE [Suspect]
     Active Substance: METHOTREXATE
     Dosage: UNK
     Route: 065
  105. METHOTREXATE [Suspect]
     Active Substance: METHOTREXATE
     Dosage: UNK
     Route: 065
  106. METHOTREXATE [Suspect]
     Active Substance: METHOTREXATE
     Dosage: UNK
     Route: 065
  107. METHOTREXATE [Suspect]
     Active Substance: METHOTREXATE
     Dosage: UNK
     Route: 065
  108. METHOTREXATE [Suspect]
     Active Substance: METHOTREXATE
     Dosage: UNK
     Route: 065
  109. METHOTREXATE [Suspect]
     Active Substance: METHOTREXATE
     Dosage: UNK
     Route: 065
  110. METHOTREXATE [Suspect]
     Active Substance: METHOTREXATE
     Dosage: UNK
     Route: 065
  111. METHOTREXATE [Suspect]
     Active Substance: METHOTREXATE
     Dosage: 6 DOSAGE FORM, ONCE A DAY (2 DOSAGE FORM, TID (6 DOSAGE FORM, QD)
     Route: 065
  112. HYDROXYUREA [Suspect]
     Active Substance: HYDROXYUREA
     Indication: Psoriasis
     Route: 065
  113. HYDROXYUREA [Suspect]
     Active Substance: HYDROXYUREA
     Dosage: UNK
     Route: 065
  114. HYDROXYUREA [Suspect]
     Active Substance: HYDROXYUREA
     Dosage: UNK
     Route: 065
  115. HYDROXYUREA [Suspect]
     Active Substance: HYDROXYUREA
     Dosage: UNK
     Route: 065
  116. HYDROXYUREA [Suspect]
     Active Substance: HYDROXYUREA
     Dosage: UNK
     Route: 065
  117. HYDROXYUREA [Suspect]
     Active Substance: HYDROXYUREA
     Dosage: UNK
     Route: 065
  118. HYDROXYUREA [Suspect]
     Active Substance: HYDROXYUREA
     Dosage: UNK
     Route: 065
  119. HYDROXYUREA [Suspect]
     Active Substance: HYDROXYUREA
     Dosage: UNK
     Route: 065
  120. HYDROXYUREA [Suspect]
     Active Substance: HYDROXYUREA
     Dosage: UNK
     Route: 065
  121. HYDROXYUREA [Suspect]
     Active Substance: HYDROXYUREA
     Dosage: UNK
     Route: 065
  122. HYDROXYUREA [Suspect]
     Active Substance: HYDROXYUREA
     Dosage: UNK
     Route: 065
  123. HYDROXYUREA [Suspect]
     Active Substance: HYDROXYUREA
     Dosage: UNK
     Route: 065
  124. HYDROXYUREA [Suspect]
     Active Substance: HYDROXYUREA
     Dosage: UNK
     Route: 065
  125. HYDROXYUREA [Suspect]
     Active Substance: HYDROXYUREA
     Dosage: UNK
     Route: 065
  126. HYDROXYUREA [Suspect]
     Active Substance: HYDROXYUREA
     Dosage: UNK
     Route: 065
  127. HYDROXYUREA [Suspect]
     Active Substance: HYDROXYUREA
     Dosage: UNK
     Route: 065
  128. HYDROXYUREA [Suspect]
     Active Substance: HYDROXYUREA
     Dosage: UNK
     Route: 065
  129. HYDROXYUREA [Suspect]
     Active Substance: HYDROXYUREA
     Dosage: UNK
     Route: 065
  130. HYDROXYUREA [Suspect]
     Active Substance: HYDROXYUREA
     Dosage: UNK
  131. HYDROXYUREA [Suspect]
     Active Substance: HYDROXYUREA
     Dosage: UNK
     Route: 065
  132. HYDROXYUREA [Suspect]
     Active Substance: HYDROXYUREA
     Dosage: UNK
     Route: 065
  133. ACETAMINOPHEN\CODEINE PHOSPHATE [Suspect]
     Active Substance: ACETAMINOPHEN\CODEINE PHOSPHATE
     Indication: Product used for unknown indication
     Dosage: 6 DOSAGE FORM, ONCE A DAY (2 DOSAGE FORM, TID, (30/500MG 2 TABLETS TDS) ;TIMEINTERVAL:0.33333333 DAYS)
  134. ACETAMINOPHEN\CODEINE PHOSPHATE [Suspect]
     Active Substance: ACETAMINOPHEN\CODEINE PHOSPHATE
     Dosage: 6 DOSAGE FORM, ONCE A DAY
  135. ACETAMINOPHEN\CODEINE PHOSPHATE [Suspect]
     Active Substance: ACETAMINOPHEN\CODEINE PHOSPHATE
     Dosage: 2 DOSAGE FORM, ONCE A DAY
  136. ACETAMINOPHEN\CODEINE PHOSPHATE [Suspect]
     Active Substance: ACETAMINOPHEN\CODEINE PHOSPHATE
     Dosage: 2 DOSAGE FORM, ONCE A DAY
  137. ACETAMINOPHEN\CODEINE PHOSPHATE [Suspect]
     Active Substance: ACETAMINOPHEN\CODEINE PHOSPHATE
     Dosage: 6 DOSAGE FORM, ONCE A DAY
  138. ACETAMINOPHEN\CODEINE PHOSPHATE [Suspect]
     Active Substance: ACETAMINOPHEN\CODEINE PHOSPHATE
     Dosage: 6 DOSAGE FORM, ONCE A DAY
  139. ACETAMINOPHEN\CODEINE PHOSPHATE [Suspect]
     Active Substance: ACETAMINOPHEN\CODEINE PHOSPHATE
     Dosage: 6 DOSAGE FORM, ONCE A DAY
  140. ACETAMINOPHEN\CODEINE PHOSPHATE [Suspect]
     Active Substance: ACETAMINOPHEN\CODEINE PHOSPHATE
     Dosage: 6 DOSAGE FORM, ONCE A DAY
  141. ACETAMINOPHEN\CODEINE PHOSPHATE [Suspect]
     Active Substance: ACETAMINOPHEN\CODEINE PHOSPHATE
     Dosage: 6 DOSAGE FORM, ONCE A DAY
  142. ACETAMINOPHEN\CODEINE PHOSPHATE [Suspect]
     Active Substance: ACETAMINOPHEN\CODEINE PHOSPHATE
     Dosage: 6 DOSAGE FORM, ONCE A DAY
  143. ACETAMINOPHEN\CODEINE PHOSPHATE [Suspect]
     Active Substance: ACETAMINOPHEN\CODEINE PHOSPHATE
     Dosage: 6 DOSAGE FORM, ONCE A DAY
  144. ACETAMINOPHEN\CODEINE PHOSPHATE [Suspect]
     Active Substance: ACETAMINOPHEN\CODEINE PHOSPHATE
     Dosage: 6 DOSAGE FORM, ONCE A DAY
  145. ACETAMINOPHEN\CODEINE PHOSPHATE [Suspect]
     Active Substance: ACETAMINOPHEN\CODEINE PHOSPHATE
     Dosage: 6 DOSAGE FORM, ONCE A DAY
     Route: 065
  146. BETAMETHASONE DIPROPIONATE\CALCIPOTRIENE MONOHYDRATE [Suspect]
     Active Substance: BETAMETHASONE DIPROPIONATE\CALCIPOTRIENE MONOHYDRATE
     Indication: Product used for unknown indication
     Dosage: UNK, AS NEEDED (RARELY, QV)
  147. BETAMETHASONE DIPROPIONATE\CALCIPOTRIENE MONOHYDRATE [Suspect]
     Active Substance: BETAMETHASONE DIPROPIONATE\CALCIPOTRIENE MONOHYDRATE
     Dosage: (RARELY, QV)
     Route: 065
  148. BETAMETHASONE DIPROPIONATE\CALCIPOTRIENE MONOHYDRATE [Suspect]
     Active Substance: BETAMETHASONE DIPROPIONATE\CALCIPOTRIENE MONOHYDRATE
     Dosage: (RARELY, QV)
     Route: 065
  149. BETAMETHASONE DIPROPIONATE\CALCIPOTRIENE MONOHYDRATE [Suspect]
     Active Substance: BETAMETHASONE DIPROPIONATE\CALCIPOTRIENE MONOHYDRATE
     Dosage: (RARELY, QV)
     Route: 065
  150. BETAMETHASONE DIPROPIONATE\CALCIPOTRIENE MONOHYDRATE [Suspect]
     Active Substance: BETAMETHASONE DIPROPIONATE\CALCIPOTRIENE MONOHYDRATE
     Dosage: (RARELY, QV)
     Route: 065
  151. BETAMETHASONE DIPROPIONATE\CALCIPOTRIENE MONOHYDRATE [Suspect]
     Active Substance: BETAMETHASONE DIPROPIONATE\CALCIPOTRIENE MONOHYDRATE
     Dosage: (RARELY, QV)
  152. BETAMETHASONE DIPROPIONATE\CALCIPOTRIENE MONOHYDRATE [Suspect]
     Active Substance: BETAMETHASONE DIPROPIONATE\CALCIPOTRIENE MONOHYDRATE
     Dosage: (RARELY, QV)
     Route: 065
  153. BETAMETHASONE DIPROPIONATE\CALCIPOTRIENE MONOHYDRATE [Suspect]
     Active Substance: BETAMETHASONE DIPROPIONATE\CALCIPOTRIENE MONOHYDRATE
     Dosage: (RARELY, QV)
  154. BETAMETHASONE DIPROPIONATE\CALCIPOTRIENE MONOHYDRATE [Suspect]
     Active Substance: BETAMETHASONE DIPROPIONATE\CALCIPOTRIENE MONOHYDRATE
     Dosage: (RARELY, QV)
  155. BETAMETHASONE DIPROPIONATE\CALCIPOTRIENE MONOHYDRATE [Suspect]
     Active Substance: BETAMETHASONE DIPROPIONATE\CALCIPOTRIENE MONOHYDRATE
     Dosage: (RARELY, QV)
     Route: 065
  156. BETAMETHASONE DIPROPIONATE\CALCIPOTRIENE MONOHYDRATE [Suspect]
     Active Substance: BETAMETHASONE DIPROPIONATE\CALCIPOTRIENE MONOHYDRATE
     Dosage: (RARELY, QV)
     Route: 065
  157. BETAMETHASONE DIPROPIONATE\CALCIPOTRIENE MONOHYDRATE [Suspect]
     Active Substance: BETAMETHASONE DIPROPIONATE\CALCIPOTRIENE MONOHYDRATE
     Dosage: (RARELY, QV)
  158. BETAMETHASONE DIPROPIONATE\CALCIPOTRIENE MONOHYDRATE [Suspect]
     Active Substance: BETAMETHASONE DIPROPIONATE\CALCIPOTRIENE MONOHYDRATE
     Dosage: (RARELY, QV)
  159. BETAMETHASONE DIPROPIONATE\CALCIPOTRIENE MONOHYDRATE [Suspect]
     Active Substance: BETAMETHASONE DIPROPIONATE\CALCIPOTRIENE MONOHYDRATE
     Dosage: (RARELY, QV)
  160. BETAMETHASONE DIPROPIONATE\CALCIPOTRIENE MONOHYDRATE [Suspect]
     Active Substance: BETAMETHASONE DIPROPIONATE\CALCIPOTRIENE MONOHYDRATE
     Dosage: (RARELY, QV)
  161. BETAMETHASONE DIPROPIONATE\CALCIPOTRIENE MONOHYDRATE [Suspect]
     Active Substance: BETAMETHASONE DIPROPIONATE\CALCIPOTRIENE MONOHYDRATE
     Dosage: (RARELY, QV)
  162. BETAMETHASONE DIPROPIONATE\CALCIPOTRIENE MONOHYDRATE [Suspect]
     Active Substance: BETAMETHASONE DIPROPIONATE\CALCIPOTRIENE MONOHYDRATE
     Dosage: (RARELY, QV)
  163. BETAMETHASONE DIPROPIONATE\CALCIPOTRIENE MONOHYDRATE [Suspect]
     Active Substance: BETAMETHASONE DIPROPIONATE\CALCIPOTRIENE MONOHYDRATE
     Dosage: (RARELY, QV)
  164. BETAMETHASONE DIPROPIONATE\CALCIPOTRIENE MONOHYDRATE [Suspect]
     Active Substance: BETAMETHASONE DIPROPIONATE\CALCIPOTRIENE MONOHYDRATE
     Dosage: (RARELY, QV)
  165. ACITRETIN [Suspect]
     Active Substance: ACITRETIN
     Indication: Psoriasis
     Dosage: 6 DOSAGE FORM, ONCE A DAY (2 DOSAGE FORM, TID (TIME INTERVAL: 0.33333333 DAYS))
     Route: 065
  166. ACITRETIN [Suspect]
     Active Substance: ACITRETIN
     Dosage: UNK
  167. ACITRETIN [Suspect]
     Active Substance: ACITRETIN
     Dosage: UNK
  168. ACITRETIN [Suspect]
     Active Substance: ACITRETIN
     Dosage: UNK
     Route: 065
  169. ACITRETIN [Suspect]
     Active Substance: ACITRETIN
     Dosage: UNK
     Route: 065
  170. ACITRETIN [Suspect]
     Active Substance: ACITRETIN
     Dosage: UNK
     Route: 065
  171. ACITRETIN [Suspect]
     Active Substance: ACITRETIN
     Dosage: UNK
     Route: 065
  172. ACITRETIN [Suspect]
     Active Substance: ACITRETIN
     Dosage: UNK
     Route: 065
  173. ACITRETIN [Suspect]
     Active Substance: ACITRETIN
     Dosage: UNK
     Route: 065
  174. ACITRETIN [Suspect]
     Active Substance: ACITRETIN
     Dosage: UNK
     Route: 065
  175. ACITRETIN [Suspect]
     Active Substance: ACITRETIN
     Dosage: UNK
     Route: 065
  176. ACITRETIN [Suspect]
     Active Substance: ACITRETIN
     Dosage: UNK
     Route: 065
  177. ACITRETIN [Suspect]
     Active Substance: ACITRETIN
     Dosage: UNK
     Route: 065
  178. ACITRETIN [Suspect]
     Active Substance: ACITRETIN
     Dosage: UNK
     Route: 065
  179. ACITRETIN [Suspect]
     Active Substance: ACITRETIN
     Dosage: UNK
     Route: 065
  180. ACITRETIN [Suspect]
     Active Substance: ACITRETIN
     Dosage: UNK
     Route: 065
  181. ACITRETIN [Suspect]
     Active Substance: ACITRETIN
     Dosage: UNK
     Route: 065
  182. ACITRETIN [Suspect]
     Active Substance: ACITRETIN
     Dosage: UNK
     Route: 065
  183. ACITRETIN [Suspect]
     Active Substance: ACITRETIN
     Dosage: UNK
  184. ACITRETIN [Suspect]
     Active Substance: ACITRETIN
     Dosage: 2 DOSAGE FORM, 0.33 TIME A DAY
     Route: 065
  185. ACITRETIN [Suspect]
     Active Substance: ACITRETIN
     Dosage: UNK
     Route: 065
  186. ACITRETIN [Suspect]
     Active Substance: ACITRETIN
     Dosage: UNK
     Route: 065
  187. STELARA [Suspect]
     Active Substance: USTEKINUMAB
     Indication: Psoriasis
  188. STELARA [Suspect]
     Active Substance: USTEKINUMAB
  189. STELARA [Suspect]
     Active Substance: USTEKINUMAB
  190. STELARA [Suspect]
     Active Substance: USTEKINUMAB
  191. STELARA [Suspect]
     Active Substance: USTEKINUMAB
  192. STELARA [Suspect]
     Active Substance: USTEKINUMAB
  193. STELARA [Suspect]
     Active Substance: USTEKINUMAB
  194. STELARA [Suspect]
     Active Substance: USTEKINUMAB
  195. STELARA [Suspect]
     Active Substance: USTEKINUMAB
  196. STELARA [Suspect]
     Active Substance: USTEKINUMAB
  197. STELARA [Suspect]
     Active Substance: USTEKINUMAB
  198. STELARA [Suspect]
     Active Substance: USTEKINUMAB
  199. STELARA [Suspect]
     Active Substance: USTEKINUMAB
  200. STELARA [Suspect]
     Active Substance: USTEKINUMAB
  201. STELARA [Suspect]
     Active Substance: USTEKINUMAB
  202. STELARA [Suspect]
     Active Substance: USTEKINUMAB
  203. STELARA [Suspect]
     Active Substance: USTEKINUMAB
  204. STELARA [Suspect]
     Active Substance: USTEKINUMAB
  205. STELARA [Suspect]
     Active Substance: USTEKINUMAB
  206. STELARA [Suspect]
     Active Substance: USTEKINUMAB
  207. STELARA [Suspect]
     Active Substance: USTEKINUMAB
  208. STELARA [Suspect]
     Active Substance: USTEKINUMAB
  209. STELARA [Suspect]
     Active Substance: USTEKINUMAB
  210. STELARA [Suspect]
     Active Substance: USTEKINUMAB
  211. STELARA [Suspect]
     Active Substance: USTEKINUMAB
  212. STELARA [Suspect]
     Active Substance: USTEKINUMAB
  213. STELARA [Suspect]
     Active Substance: USTEKINUMAB
  214. STELARA [Suspect]
     Active Substance: USTEKINUMAB
  215. STELARA [Suspect]
     Active Substance: USTEKINUMAB
  216. STELARA [Suspect]
     Active Substance: USTEKINUMAB
  217. STELARA [Suspect]
     Active Substance: USTEKINUMAB
  218. STELARA [Suspect]
     Active Substance: USTEKINUMAB
  219. STELARA [Suspect]
     Active Substance: USTEKINUMAB
  220. STELARA [Suspect]
     Active Substance: USTEKINUMAB
  221. STELARA [Suspect]
     Active Substance: USTEKINUMAB
  222. STELARA [Suspect]
     Active Substance: USTEKINUMAB
  223. STELARA [Suspect]
     Active Substance: USTEKINUMAB
  224. STELARA [Suspect]
     Active Substance: USTEKINUMAB
  225. STELARA [Suspect]
     Active Substance: USTEKINUMAB
  226. STELARA [Suspect]
     Active Substance: USTEKINUMAB
  227. STELARA [Suspect]
     Active Substance: USTEKINUMAB
  228. STELARA [Suspect]
     Active Substance: USTEKINUMAB
  229. STELARA [Suspect]
     Active Substance: USTEKINUMAB
  230. STELARA [Suspect]
     Active Substance: USTEKINUMAB
  231. STELARA [Suspect]
     Active Substance: USTEKINUMAB
  232. STELARA [Suspect]
     Active Substance: USTEKINUMAB
  233. STELARA [Suspect]
     Active Substance: USTEKINUMAB
  234. STELARA [Suspect]
     Active Substance: USTEKINUMAB
  235. STELARA [Suspect]
     Active Substance: USTEKINUMAB
     Route: 065
  236. STELARA [Suspect]
     Active Substance: USTEKINUMAB
     Route: 065
  237. BETAMETHASONE DIPROPIONATE [Suspect]
     Active Substance: BETAMETHASONE DIPROPIONATE
     Indication: Product used for unknown indication
     Dosage: UNK
     Route: 065
  238. BETAMETHASONE DIPROPIONATE [Suspect]
     Active Substance: BETAMETHASONE DIPROPIONATE
     Dosage: UNK
     Route: 065
  239. BETAMETHASONE DIPROPIONATE [Suspect]
     Active Substance: BETAMETHASONE DIPROPIONATE
     Dosage: UNK
     Route: 065
  240. BETAMETHASONE DIPROPIONATE [Suspect]
     Active Substance: BETAMETHASONE DIPROPIONATE
     Dosage: UNK
     Route: 065
  241. HUMIRA [Suspect]
     Active Substance: ADALIMUMAB
     Indication: Psoriasis
     Dosage: UNK
  242. HUMIRA [Suspect]
     Active Substance: ADALIMUMAB
     Dosage: UNK
  243. HUMIRA [Suspect]
     Active Substance: ADALIMUMAB
     Dosage: UNK
  244. HUMIRA [Suspect]
     Active Substance: ADALIMUMAB
     Dosage: UNK
  245. HUMIRA [Suspect]
     Active Substance: ADALIMUMAB
     Dosage: UNK
  246. HUMIRA [Suspect]
     Active Substance: ADALIMUMAB
     Dosage: UNK
     Route: 065
  247. HUMIRA [Suspect]
     Active Substance: ADALIMUMAB
     Dosage: UNK
     Route: 065
  248. HUMIRA [Suspect]
     Active Substance: ADALIMUMAB
     Dosage: UNK
     Route: 065
  249. HUMIRA [Suspect]
     Active Substance: ADALIMUMAB
     Dosage: UNK
     Route: 065
  250. HUMIRA [Suspect]
     Active Substance: ADALIMUMAB
     Dosage: UNK
     Route: 065
  251. HUMIRA [Suspect]
     Active Substance: ADALIMUMAB
     Dosage: UNK
     Route: 065
  252. CODEINE [Suspect]
     Active Substance: CODEINE
     Indication: Product used for unknown indication
     Dosage: 6 DOSAGE FORM, ONCE A DAY
     Route: 065
  253. CODEINE [Suspect]
     Active Substance: CODEINE
     Dosage: 2 DOSAGE FORM, ONCE A DAY
     Route: 065
  254. CODEINE [Suspect]
     Active Substance: CODEINE
     Dosage: 2 DOSAGE FORM, ONCE A DAY
     Route: 065
  255. COCODAMOL [Suspect]
     Active Substance: ACETAMINOPHEN\CODEINE PHOSPHATE
     Indication: Product used for unknown indication
     Dosage: 6 DOSAGE FORM, ONCE A DAY
     Route: 065
  256. COCODAMOL [Suspect]
     Active Substance: ACETAMINOPHEN\CODEINE PHOSPHATE
     Dosage: 6 DOSAGE FORM, ONCE A DAY
     Route: 065
  257. COCODAMOL [Suspect]
     Active Substance: ACETAMINOPHEN\CODEINE PHOSPHATE
     Dosage: 6 DOSAGE FORM, ONCE A DAY
     Route: 065
  258. COCODAMOL [Suspect]
     Active Substance: ACETAMINOPHEN\CODEINE PHOSPHATE
     Dosage: 6 DOSAGE FORM, ONCE A DAY
     Route: 065
  259. COCODAMOL [Suspect]
     Active Substance: ACETAMINOPHEN\CODEINE PHOSPHATE
     Dosage: 6 DOSAGE FORM, ONCE A DAY
     Route: 065
  260. COCODAMOL [Suspect]
     Active Substance: ACETAMINOPHEN\CODEINE PHOSPHATE
     Dosage: 2 DOSAGE FORM, ONCE A DAY
     Route: 065
  261. COCODAMOL [Suspect]
     Active Substance: ACETAMINOPHEN\CODEINE PHOSPHATE
     Dosage: 6 DOSAGE FORM, ONCE A DAY
     Route: 065
  262. COCODAMOL [Suspect]
     Active Substance: ACETAMINOPHEN\CODEINE PHOSPHATE
     Dosage: 6 DOSAGE FORM, ONCE A DAY
     Route: 065
  263. COCODAMOL [Suspect]
     Active Substance: ACETAMINOPHEN\CODEINE PHOSPHATE
     Dosage: 6 DOSAGE FORM, ONCE A DAY
     Route: 065
  264. COCODAMOL [Suspect]
     Active Substance: ACETAMINOPHEN\CODEINE PHOSPHATE
     Dosage: 2 DOSAGE FORM, ONCE A DAY
     Route: 065
  265. COCODAMOL [Suspect]
     Active Substance: ACETAMINOPHEN\CODEINE PHOSPHATE
     Dosage: 6 DOSAGE FORM, ONCE A DAY
     Route: 065
  266. DAIVOBET [Suspect]
     Active Substance: BETAMETHASONE DIPROPIONATE\CALCIPOTRIENE
     Indication: Product used for unknown indication
     Dosage: AS NEEDED, (RARELY, QV)
     Route: 065
  267. DAIVOBET [Suspect]
     Active Substance: BETAMETHASONE DIPROPIONATE\CALCIPOTRIENE
     Dosage: AS NEEDED, (RARELY, QV)
     Route: 065
  268. DAIVOBET [Suspect]
     Active Substance: BETAMETHASONE DIPROPIONATE\CALCIPOTRIENE
     Dosage: AS NEEDED, (RARELY, QV)
     Route: 065
  269. DAIVOBET [Suspect]
     Active Substance: BETAMETHASONE DIPROPIONATE\CALCIPOTRIENE
     Dosage: AS NEEDED, (RARELY, QV)
     Route: 065
  270. DAIVOBET [Suspect]
     Active Substance: BETAMETHASONE DIPROPIONATE\CALCIPOTRIENE
     Dosage: AS NEEDED, (RARELY, QV)
     Route: 065
  271. DAIVOBET [Suspect]
     Active Substance: BETAMETHASONE DIPROPIONATE\CALCIPOTRIENE
     Dosage: AS NEEDED, (RARELY, QV)
     Route: 065
  272. DAIVOBET [Suspect]
     Active Substance: BETAMETHASONE DIPROPIONATE\CALCIPOTRIENE
     Dosage: AS NEEDED, (RARELY, QV)
     Route: 065
  273. DAIVOBET [Suspect]
     Active Substance: BETAMETHASONE DIPROPIONATE\CALCIPOTRIENE
     Dosage: AS NEEDED, (RARELY, QV)
     Route: 065
  274. DAIVOBET [Suspect]
     Active Substance: BETAMETHASONE DIPROPIONATE\CALCIPOTRIENE
     Dosage: AS NEEDED, (RARELY, QV)
     Route: 065
  275. DAIVOBET [Suspect]
     Active Substance: BETAMETHASONE DIPROPIONATE\CALCIPOTRIENE
     Dosage: AS NEEDED, (RARELY, QV)
     Route: 065
  276. DAIVOBET [Suspect]
     Active Substance: BETAMETHASONE DIPROPIONATE\CALCIPOTRIENE
     Dosage: AS NEEDED, (RARELY, QV)
     Route: 065
  277. DAIVOBET [Suspect]
     Active Substance: BETAMETHASONE DIPROPIONATE\CALCIPOTRIENE
     Dosage: AS NEEDED, (RARELY, QV)
     Route: 065
  278. DAIVOBET [Suspect]
     Active Substance: BETAMETHASONE DIPROPIONATE\CALCIPOTRIENE
     Dosage: AS NEEDED, (RARELY, QV)
     Route: 065
  279. DAIVOBET [Suspect]
     Active Substance: BETAMETHASONE DIPROPIONATE\CALCIPOTRIENE
     Dosage: AS NEEDED, (RARELY, QV)
     Route: 065
  280. DAIVOBET [Suspect]
     Active Substance: BETAMETHASONE DIPROPIONATE\CALCIPOTRIENE
     Dosage: AS NEEDED, (RARELY, QV)
     Route: 065
  281. DAIVOBET [Suspect]
     Active Substance: BETAMETHASONE DIPROPIONATE\CALCIPOTRIENE
     Dosage: AS NEEDED, (RARELY, QV)
     Route: 065
  282. DAIVOBET [Suspect]
     Active Substance: BETAMETHASONE DIPROPIONATE\CALCIPOTRIENE
     Dosage: AS NEEDED, (RARELY, QV)
     Route: 065
  283. DAIVOBET [Suspect]
     Active Substance: BETAMETHASONE DIPROPIONATE\CALCIPOTRIENE
     Dosage: AS NEEDED, (RARELY, QV)
     Route: 065
  284. DAIVOBET [Suspect]
     Active Substance: BETAMETHASONE DIPROPIONATE\CALCIPOTRIENE
     Dosage: AS NEEDED, (RARELY, QV)
     Route: 065
  285. DAIVOBET [Suspect]
     Active Substance: BETAMETHASONE DIPROPIONATE\CALCIPOTRIENE
     Dosage: UNK
     Route: 065

REACTIONS (5)
  - Pruritus genital [Unknown]
  - Hypertension [Unknown]
  - Rash pruritic [Unknown]
  - Rash [Unknown]
  - Drug ineffective [Unknown]
